FAERS Safety Report 14186354 (Version 2)
Quarter: 2017Q4

REPORT INFORMATION
  Report Type: Spontaneous
  Country: DE (occurrence: DE)
  Receive Date: 20171114
  Receipt Date: 20171221
  Transmission Date: 20180321
  Serious: Yes (Life-Threatening, Hospitalization, Other)
  Sender: FDA-Public Use
  Company Number: DE-CONCORDIA PHARMACEUTICALS INC.-E2B_00008485

PATIENT
  Age: 19 Year
  Sex: Female

DRUGS (7)
  1. ACETAMINOPHEN. [Concomitant]
     Active Substance: ACETAMINOPHEN
     Dosage: THE DAYS BEFORE ADMISSION
  2. SULFAMETHOXAZOLE/TRIMETHOPRIM [Concomitant]
     Active Substance: SULFAMETHOXAZOLE\TRIMETHOPRIM
     Indication: PROPHYLAXIS
     Dates: start: 201402, end: 201403
  3. PREDNISOLONE. [Suspect]
     Active Substance: PREDNISOLONE
     Indication: IMMUNOSUPPRESSION
     Dosage: TAPERED DOSE AFTER ADALIMUMAB INDUCTION
  4. AZATHIOPRINE. [Suspect]
     Active Substance: AZATHIOPRINE
     Indication: IMMUNOSUPPRESSION
     Dates: end: 201403
  5. N-ACETYLCYSTEINE [Concomitant]
     Active Substance: ACETYLCYSTEINE
     Dates: start: 201403
  6. ADALIMUMAB [Suspect]
     Active Substance: ADALIMUMAB
     Indication: IMMUNOSUPPRESSION
     Dosage: INDUCTION DOSE
     Dates: start: 201402
  7. ADALIMUMAB [Suspect]
     Active Substance: ADALIMUMAB
     Dosage: SECOND DOSE, ADMINISTERED 4?DAYS BEFORE ADMISSION
     Dates: start: 2014, end: 201403

REACTIONS (3)
  - Herpes simplex [Recovering/Resolving]
  - Hepatitis viral [Recovering/Resolving]
  - Sepsis [Recovering/Resolving]

NARRATIVE: CASE EVENT DATE: 2014
